FAERS Safety Report 15663559 (Version 2)
Quarter: 2018Q4

REPORT INFORMATION
  Report Type: Spontaneous
  Country: JP (occurrence: JP)
  Receive Date: 20181128
  Receipt Date: 20181212
  Transmission Date: 20190205
  Serious: Yes (Other)
  Sender: FDA-Public Use
  Company Number: JP-009507513-1811JPN002697J

PATIENT

DRUGS (1)
  1. KEYTRUDA [Suspect]
     Active Substance: PEMBROLIZUMAB
     Indication: LUNG NEOPLASM MALIGNANT
     Dosage: UNK
     Route: 041

REACTIONS (1)
  - Immune-mediated adverse reaction [Unknown]
